FAERS Safety Report 4886767-7 (Version None)
Quarter: 2005Q4

REPORT INFORMATION
  Report Type: 
  Country: None (occurrence: None)
  Receive Date: 20051220
  Receipt Date: 20041026
  Transmission Date: 20060501
  Serious: Yes (Other)
  Sender: FDA-Public Use
  Company Number: HQWYE091516SEP04

PATIENT
  Age: 45 Year
  Sex: Female
  Weight: 49.49 kg

DRUGS (6)
  1. EFFEXOR XR [Suspect]
     Indication: ANXIETY
     Dosage: OVER THE YEARS DOSE FLUCTATED BETWEEN 75 AND 150 MG EVERYDAY, ORAL
     Route: 048
     Dates: start: 19990928, end: 20040809
  2. EFFEXOR XR [Suspect]
     Indication: HORMONE LEVEL ABNORMAL
     Dosage: OVER THE YEARS DOSE FLUCTATED BETWEEN 75 AND 150 MG EVERYDAY, ORAL
     Route: 048
     Dates: start: 19990928, end: 20040809
  3. EFFEXOR XR [Suspect]
     Indication: MOOD SWINGS
     Dosage: OVER THE YEARS DOSE FLUCTATED BETWEEN 75 AND 150 MG EVERYDAY, ORAL
     Route: 048
     Dates: start: 19990928, end: 20040809
  4. EFFEXOR XR [Suspect]
     Dosage: 112.5 MG 1X PER 1 DAY, ORAL
     Route: 048
     Dates: start: 20040810, end: 20040816
  5. EFFEXOR XR [Suspect]
     Dosage: 75 MG 1X PER 1 DAY, ORAL
     Route: 048
     Dates: start: 20040817, end: 20040823
  6. EFFEXOR XR [Suspect]
     Dosage: 37.5 MG 1X PER 1 DAY, ORAL
     Route: 048
     Dates: start: 20040824, end: 20040906

REACTIONS (11)
  - ANGER [None]
  - ANXIETY [None]
  - CRYING [None]
  - DEPRESSION [None]
  - DIARRHOEA [None]
  - DRUG WITHDRAWAL SYNDROME [None]
  - HOT FLUSH [None]
  - IRRITABILITY [None]
  - MOOD SWINGS [None]
  - NIGHTMARE [None]
  - TINNITUS [None]
